FAERS Safety Report 6700212-8 (Version None)
Quarter: 2010Q2

REPORT INFORMATION
  Report Type: 
  Country: None (occurrence: None)
  Receive Date: 20100428
  Receipt Date: 20100425
  Transmission Date: 20101027
  Serious: Yes (Death)
  Sender: FDA-Public Use
  Company Number: CN-PFIZER INC-2010051919

PATIENT
  Age: 67 Year
  Sex: Male

DRUGS (5)
  1. CELEBREX [Suspect]
     Indication: PAIN MANAGEMENT
     Dosage: 200 MG, 1X/DAY
     Route: 048
     Dates: start: 20100401, end: 20100406
  2. CAFF/CHLORPHEN MAL/DIHYDROC PH/METHYLEPH HCL-DL/PARAC/RIBOFL/THIAM MN [Concomitant]
     Dosage: 2.0 G, 1X/DAY
  3. CEFAZOLIN SODIUM [Concomitant]
     Dosage: 2 G, SINGLE
  4. FRUCTOSE [Concomitant]
     Dosage: UNK
  5. CARBAZOCHROME SODIUM SULFONATE [Concomitant]
     Dosage: UNK

REACTIONS (1)
  - HYPOTENSION [None]
